FAERS Safety Report 7936897-8 (Version None)
Quarter: 2011Q4

REPORT INFORMATION
  Report Type: 
  Country: None (occurrence: None)
  Receive Date: 20111123
  Receipt Date: 20111118
  Transmission Date: 20120403
  Serious: Yes (Other)
  Sender: FDA-Public Use
  Company Number: US-ROCHE-1012076

PATIENT
  Sex: Male
  Weight: 92.616 kg

DRUGS (18)
  1. SERTRALINE HYDROCHLORIDE [Concomitant]
     Dosage: REPORTED AS SERTRALIRE
     Route: 065
  2. ZYFLO CR [Concomitant]
     Route: 065
  3. XOLAIR [Suspect]
     Indication: PRODUCT USED FOR UNKNOWN INDICATION
     Route: 058
     Dates: start: 20110707
  4. LISINOPRIL [Concomitant]
     Route: 065
  5. ALENDRONATE SODIUM [Concomitant]
     Route: 065
  6. PROLAIR [Concomitant]
     Dosage: 2 PUFF
     Route: 065
  7. WELLBUTRIN [Concomitant]
     Route: 065
  8. FLUTICASONE PROPIONATE [Concomitant]
     Route: 065
  9. ALBUTEROL [Concomitant]
     Route: 065
  10. LEFLUNOMIDE [Concomitant]
     Route: 065
  11. VITAMIN D [Concomitant]
     Dosage: 1 TAB DAY
     Route: 065
  12. IBUPROFEN [Concomitant]
     Route: 065
  13. BENZOYL PEROXIDE [Concomitant]
     Dosage: 10%
     Route: 065
  14. CLINDAMYCIN [Concomitant]
     Dosage: 1 %
     Route: 065
  15. PREDNISONE [Concomitant]
     Route: 065
  16. CITRACAL [Concomitant]
     Route: 065
  17. ASPIRIN [Concomitant]
     Route: 065
  18. OMEPRAZOLE [Concomitant]
     Route: 065

REACTIONS (1)
  - ARTHRITIS [None]
